FAERS Safety Report 5368069-8 (Version None)
Quarter: 2007Q2

REPORT INFORMATION
  Report Type: 
  Country: None (occurrence: None)
  Receive Date: 20070622
  Receipt Date: 20070612
  Transmission Date: 20071010
  Serious: Yes (Other)
  Sender: FDA-Public Use
  Company Number: US-PFIZER INC-2007049208

PATIENT
  Age: 58 Year
  Sex: Female
  Weight: 92.5 kg

DRUGS (9)
  1. CHANTIX [Suspect]
     Indication: EX-SMOKER
     Route: 048
  2. NEURONTIN [Concomitant]
  3. METFORMIN HCL [Concomitant]
  4. ENALAPRIL [Concomitant]
  5. PRAVASTATIN [Concomitant]
  6. IBUPROFEN [Concomitant]
  7. LEXAPRO [Concomitant]
  8. ACETYLSALICYLIC ACID SRT [Concomitant]
  9. MULTIVITAMIN [Concomitant]

REACTIONS (5)
  - ASTHENIA [None]
  - BLOOD GLUCOSE DECREASED [None]
  - DIZZINESS [None]
  - FATIGUE [None]
  - HYPERHIDROSIS [None]
